FAERS Safety Report 12626203 (Version 5)
Quarter: 2019Q3

REPORT INFORMATION
  Report Type: Report from Study
  Country: US (occurrence: US)
  Receive Date: 20160805
  Receipt Date: 20190917
  Transmission Date: 20191004
  Serious: Yes (Death, Hospitalization)
  Sender: FDA-Public Use
  Company Number: US-ACTELION-A-NJ2016-140113

PATIENT
  Age: 60 Year
  Sex: Female

DRUGS (1)
  1. OPSUMIT [Suspect]
     Active Substance: MACITENTAN
     Indication: PULMONARY ARTERIAL HYPERTENSION
     Dosage: 10 MG, QD
     Route: 048
     Dates: start: 20150824, end: 201608

REACTIONS (4)
  - Respiratory failure [Fatal]
  - Renal failure [Fatal]
  - Pericardial effusion [Unknown]
  - Cardiac operation [Unknown]

NARRATIVE: CASE EVENT DATE: 20160724
